FAERS Safety Report 7055492-9 (Version None)
Quarter: 2010Q4

REPORT INFORMATION
  Report Type: 
  Country: None (occurrence: None)
  Receive Date: 20101021
  Receipt Date: 20101012
  Transmission Date: 20110411
  Serious: Yes (Other)
  Sender: FDA-Public Use
  Company Number: US-WYE-H18155910

PATIENT
  Sex: Female
  Weight: 63.56 kg

DRUGS (1)
  1. PREMPRO [Suspect]
     Indication: VULVOVAGINAL DISCOMFORT
     Dosage: 1 TABLET (FREQUENCY NOT PROVIDED)
     Route: 048
     Dates: start: 20100201, end: 20100615

REACTIONS (5)
  - EAR DISCOMFORT [None]
  - GASTROOESOPHAGEAL REFLUX DISEASE [None]
  - HEADACHE [None]
  - PULMONARY EMBOLISM [None]
  - WITHDRAWAL SYNDROME [None]
